FAERS Safety Report 6525218-3 (Version None)
Quarter: 2010Q1

REPORT INFORMATION
  Report Type: 
  Country: None (occurrence: None)
  Receive Date: 20100104
  Receipt Date: 20091223
  Transmission Date: 20100710
  Serious: No
  Sender: FDA-Public Use
  Company Number: US-BAYER-200943594NA

PATIENT
  Age: 20 Year
  Sex: Female
  Weight: 67 kg

DRUGS (1)
  1. MIRENA [Suspect]
     Indication: CONTRACEPTION
     Dosage: CONTINUOUS
     Route: 015
     Dates: start: 20080804, end: 20090101

REACTIONS (7)
  - HAEMORRHAGIC OVARIAN CYST [None]
  - MEDICAL DEVICE COMPLICATION [None]
  - MENORRHAGIA [None]
  - MENSTRUAL DISORDER [None]
  - NAUSEA [None]
  - PREGNANCY WITH CONTRACEPTIVE DEVICE [None]
  - UNEVALUABLE EVENT [None]
